FAERS Safety Report 6752483-X (Version None)
Quarter: 2010Q2

REPORT INFORMATION
  Report Type: 
  Country: None (occurrence: None)
  Receive Date: 20100601
  Receipt Date: 20100601
  Transmission Date: 20101027
  Serious: Yes (Life-Threatening, Hospitalization, Disabling)
  Sender: FDA-Public Use
  Company Number: None

PATIENT
  Age: 70 Year
  Sex: Female
  Weight: 61.2356 kg

DRUGS (2)
  1. MULTIHANCE [Suspect]
     Indication: HYPERTROPHIC CARDIOMYOPATHY
     Dosage: 26ML ONCE IV
     Route: 042
     Dates: start: 20100527, end: 20100527
  2. MULTIHANCE [Suspect]
     Indication: PALPITATIONS
     Dosage: 26ML ONCE IV
     Route: 042
     Dates: start: 20100527, end: 20100527

REACTIONS (5)
  - ANAPHYLACTIC REACTION [None]
  - DRUG HYPERSENSITIVITY [None]
  - IMMEDIATE POST-INJECTION REACTION [None]
  - OEDEMA MOUTH [None]
  - SWOLLEN TONGUE [None]
